FAERS Safety Report 4558735-6 (Version None)
Quarter: 2005Q1

REPORT INFORMATION
  Report Type: 
  Country: None (occurrence: None)
  Receive Date: 20050121
  Receipt Date: 20050121
  Transmission Date: 20050727
  Serious: No
  Sender: FDA-Public Use
  Company Number: None

PATIENT
  Sex: Male

DRUGS (3)
  1. ASPIRIN [Suspect]
     Indication: TOOTHACHE
  2. ALEVE [Suspect]
     Indication: TOOTHACHE
  3. ANTABUSE [Concomitant]

REACTIONS (4)
  - ASTHENIA [None]
  - FATIGUE [None]
  - HAEMATOCRIT DECREASED [None]
  - MELAENA [None]
